FAERS Safety Report 15208500 (Version 2)
Quarter: 2018Q3

REPORT INFORMATION
  Report Type: Report from Study
  Country: CN (occurrence: CN)
  Receive Date: 20180727
  Receipt Date: 20180801
  Transmission Date: 20181010
  Serious: Yes (Death, Hospitalization)
  Sender: FDA-Public Use
  Company Number: CN-AMGEN-CHNCT2018102446

PATIENT
  Age: 72 Year
  Sex: Male

DRUGS (9)
  1. HERBAL [Concomitant]
     Indication: CORONARY ARTERY DISEASE
     Dosage: 2 DF, PRN
     Route: 048
     Dates: start: 20071009
  2. FELODIPINE. [Concomitant]
     Active Substance: FELODIPINE
     Indication: HYPERTENSION
     Dosage: 50 MG, BID
     Route: 048
  3. CINACALCET HCL [Suspect]
     Active Substance: CINACALCET HYDROCHLORIDE
     Indication: HYPERPARATHYROIDISM SECONDARY
     Dosage: 25 MG, QD
     Route: 048
     Dates: start: 20180515
  4. KETOBEST [Concomitant]
     Indication: HAEMODIALYSIS
     Dosage: 4 DF, TID
     Route: 048
     Dates: start: 20090324
  5. ESTAZOLAM. [Concomitant]
     Active Substance: ESTAZOLAM
     Indication: INSOMNIA
     Dosage: 1 MG, QD
     Route: 048
     Dates: start: 20180417
  6. EPO [Concomitant]
     Active Substance: ERYTHROPOIETIN
     Indication: NEPHROGENIC ANAEMIA
     Dosage: 10000 UNIT, QD
     Route: 042
     Dates: start: 20070621
  7. LOSARTAN POTASSIUM ACCORD [Concomitant]
     Indication: HYPERTENSION
     Dosage: 100 MG, QD
     Route: 048
     Dates: start: 20060921
  8. CALCITRIOL. [Concomitant]
     Active Substance: CALCITRIOL
     Indication: CHRONIC KIDNEY DISEASE
     Dosage: 0.5 UG, QD
     Route: 048
     Dates: start: 20080722
  9. SODIUM BICARBONATE ATLANTIC [Concomitant]
     Indication: ACIDOSIS
     Dosage: 1.0 G, TID
     Route: 048
     Dates: start: 20180503

REACTIONS (1)
  - Aortic dissection rupture [Fatal]

NARRATIVE: CASE EVENT DATE: 20180714
